FAERS Safety Report 25751863 (Version 3)
Quarter: 2025Q4

REPORT INFORMATION
  Report Type: Report from Study
  Country: US (occurrence: US)
  Receive Date: 20250902
  Receipt Date: 20251030
  Transmission Date: 20260118
  Serious: Yes (Other)
  Sender: MALLINCKRODT
  Company Number: US-MALLINCKRODT-MNK202505426

PATIENT
  Age: 66 Year
  Sex: Female
  Weight: 214 kg

DRUGS (2)
  1. CORTICOTROPIN [Suspect]
     Active Substance: CORTICOTROPIN
     Indication: Rheumatoid arthritis
     Dosage: UNKNOWN
  2. CORTICOTROPIN [Suspect]
     Active Substance: CORTICOTROPIN
     Dosage: UNKNOWN

REACTIONS (7)
  - Cataract [Unknown]
  - Arthralgia [Unknown]
  - Feeling abnormal [Unknown]
  - Eye swelling [Unknown]
  - Blood glucose increased [Unknown]
  - Therapeutic response shortened [Unknown]
  - Underdose [Unknown]

NARRATIVE: CASE EVENT DATE: 20250101
